FAERS Safety Report 4526724-3 (Version None)
Quarter: 2004Q4

REPORT INFORMATION
  Report Type: 
  Country: None (occurrence: None)
  Receive Date: 20041213
  Receipt Date: 20041129
  Transmission Date: 20050328
  Serious: Yes (Hospitalization, Other)
  Sender: FDA-Public Use
  Company Number: 2004BI000574

PATIENT
  Age: 48 Year
  Sex: Female
  Weight: 79.8331 kg

DRUGS (7)
  1. AVONEX [Suspect]
     Indication: MULTIPLE SCLEROSIS
     Dosage: 30 UG; QW; IM
     Route: 030
     Dates: start: 20030101
  2. DITROPAN [Concomitant]
  3. LORAZEPAM [Concomitant]
  4. LOTREL [Concomitant]
  5. AMOXICILLIN [Concomitant]
  6. PERCOCET [Concomitant]
  7. NORTRIPTYLINE HCL [Concomitant]

REACTIONS (7)
  - BRAIN NEOPLASM [None]
  - CHOLECYSTECTOMY [None]
  - FAECALOMA [None]
  - MUSCLE SPASMS [None]
  - OPTIC NERVE DISORDER [None]
  - POLLAKIURIA [None]
  - RENAL DISORDER [None]
